FAERS Safety Report 6756267-8 (Version None)
Quarter: 2010Q2

REPORT INFORMATION
  Report Type: 
  Country: None (occurrence: None)
  Receive Date: 20100604
  Receipt Date: 20100526
  Transmission Date: 20101027
  Serious: Yes (Other)
  Sender: FDA-Public Use
  Company Number: CA-JNJFOC-20100510580

PATIENT
  Sex: Female
  Weight: 83.5 kg

DRUGS (12)
  1. REMICADE [Suspect]
     Indication: CROHN'S DISEASE
     Route: 042
  2. VITAMIN B-12 [Concomitant]
  3. HYDROCHLOROTHIAZIDE [Concomitant]
  4. PAROXETINE HCL [Concomitant]
  5. METFORMIN [Concomitant]
  6. DILTIAZEM CD [Concomitant]
  7. BIOCAL D FORTE [Concomitant]
  8. SIMVASTATIN [Concomitant]
     Dosage: BEDTIME
  9. CARVEDILOL [Concomitant]
  10. DIOVAN [Concomitant]
  11. PREVACID [Concomitant]
  12. ASAPHEN [Concomitant]

REACTIONS (2)
  - BLOOD PRESSURE INCREASED [None]
  - CHEST PAIN [None]
